FAERS Safety Report 23127262 (Version 1)
Quarter: 2023Q4

REPORT INFORMATION
  Report Type: Spontaneous
  Country: GB (occurrence: GB)
  Receive Date: 20231031
  Receipt Date: 20231031
  Transmission Date: 20240110
  Serious: Yes (Life-Threatening, Congenital Anomaly, Other)
  Sender: FDA-Public Use
  Company Number: None

PATIENT
  Age: 32 Year

DRUGS (1)
  1. PENICILLIN G [Suspect]
     Active Substance: PENICILLIN G
     Indication: Streptococcal infection
     Route: 065
     Dates: start: 20230331, end: 20230331

REACTIONS (1)
  - Anaphylactic reaction [Recovered/Resolved]

NARRATIVE: CASE EVENT DATE: 20230331
